FAERS Safety Report 10920128 (Version 1)
Quarter: 2015Q1

REPORT INFORMATION
  Report Type: Report from Study
  Country: NL (occurrence: NL)
  Receive Date: 20150317
  Receipt Date: 20150317
  Transmission Date: 20150721
  Serious: Yes (Other)
  Sender: FDA-Public Use
  Company Number: PHHY2015NL026161

PATIENT

DRUGS (1)
  1. SANDOSTATIN LAR DEPOT [Suspect]
     Active Substance: OCTREOTIDE ACETATE
     Indication: PRODUCT USED FOR UNKNOWN INDICATION
     Dosage: 30 MG /2 ML, ONCE EVERY 4 WEEKS
     Route: 030

REACTIONS (1)
  - Skin cancer [Unknown]

NARRATIVE: CASE EVENT DATE: 20150205
